FAERS Safety Report 4532069-8 (Version None)
Quarter: 2004Q4

REPORT INFORMATION
  Report Type: 
  Country: None (occurrence: None)
  Receive Date: 20041217
  Receipt Date: 20041004
  Transmission Date: 20050328
  Serious: No
  Sender: FDA-Public Use
  Company Number: 2004UW20769

PATIENT
  Age: 45 Year
  Sex: Female

DRUGS (6)
  1. NEXIUM [Suspect]
     Dosage: 20 MG DAILY PO
     Route: 048
  2. CELEXA [Concomitant]
  3. ELAVIL [Concomitant]
  4. NEURONTIN [Concomitant]
  5. RIVOTRIL [Concomitant]
  6. TORADOL [Concomitant]

REACTIONS (1)
  - HEPATITIS [None]
